FAERS Safety Report 4815022-6 (Version None)
Quarter: 2005Q4

REPORT INFORMATION
  Report Type: 
  Country: None (occurrence: None)
  Receive Date: 20051028
  Receipt Date: 20050919
  Transmission Date: 20060501
  Serious: Yes (Death)
  Sender: FDA-Public Use
  Company Number: US-ABBOTT-05P-163-0311403-00

PATIENT
  Sex: Female

DRUGS (4)
  1. RITONAVIR SOFT GELATIN CAPSULES [Suspect]
     Indication: HIV INFECTION
     Route: 048
     Dates: start: 20050520, end: 20050718
  2. APTIVUS [Suspect]
     Indication: HIV INFECTION
     Route: 048
     Dates: start: 20050520, end: 20050718
  3. APTIVUS [Concomitant]
     Indication: HIV INFECTION
     Route: 048
  4. FUZEON [Concomitant]
     Indication: DRUG USE FOR UNKNOWN INDICATION

REACTIONS (5)
  - CARDIO-RESPIRATORY ARREST [None]
  - DISEASE PROGRESSION [None]
  - HIV INFECTION [None]
  - OESOPHAGEAL CANDIDIASIS [None]
  - WEIGHT DECREASED [None]
